FAERS Safety Report 7337994-0 (Version None)
Quarter: 2011Q1

REPORT INFORMATION
  Report Type: 
  Country: None (occurrence: None)
  Receive Date: 20110308
  Receipt Date: 20110224
  Transmission Date: 20110831
  Serious: Yes (Death, Hospitalization)
  Sender: FDA-Public Use
  Company Number: US-JNJFOC-20110202255

PATIENT
  Sex: Female

DRUGS (7)
  1. DIOVAN [Concomitant]
  2. LEXAPRO [Concomitant]
  3. STELARA [Suspect]
     Indication: PRODUCT USED FOR UNKNOWN INDICATION
     Route: 058
  4. STELARA [Suspect]
     Route: 058
  5. METOPROLOL [Concomitant]
  6. SYNTHROID [Concomitant]
  7. ALL OTHER THERAPEUTIC PRODUCTS [Concomitant]

REACTIONS (2)
  - LYMPHOMA [None]
  - DEATH [None]
